FAERS Safety Report 4619717-9 (Version None)
Quarter: 2005Q1

REPORT INFORMATION
  Report Type: 
  Country: None (occurrence: None)
  Receive Date: 20050324
  Receipt Date: 20050317
  Transmission Date: 20050727
  Serious: Yes (Other)
  Sender: FDA-Public Use
  Company Number: 2005046869

PATIENT
  Age: 65 Year
  Sex: Female
  Weight: 72 kg

DRUGS (5)
  1. ATORVASTATIN             (ATORVASTATIN) [Suspect]
     Indication: ILL-DEFINED DISORDER
     Dosage: 10 MG, ORAL
     Route: 048
     Dates: start: 20040120, end: 20040224
  2. ATENOLOL [Concomitant]
  3. BENDROFLUMETHIAZIDE                            (BENDROFLUMETHIAZIDE) [Concomitant]
  4. ACETYLSALICYLIC AICD                 (ACETAYLSALICYLIC ACID) [Concomitant]
  5. SIMVASTATIN [Concomitant]

REACTIONS (2)
  - HEADACHE [None]
  - HYPERTENSION [None]
